FAERS Safety Report 8454877-3 (Version None)
Quarter: 2012Q2

REPORT INFORMATION
  Report Type: 
  Country: None (occurrence: None)
  Receive Date: 20120614
  Receipt Date: 20120607
  Transmission Date: 20120825
  Serious: Yes (Other)
  Sender: FDA-Public Use
  Company Number: 2012SP031215

PATIENT
  Age: 22 Year
  Sex: Female
  Weight: 80 kg

DRUGS (1)
  1. SAPHRIS [Suspect]
     Indication: PRODUCT USED FOR UNKNOWN INDICATION
     Dosage: 10 MG;QD;SL
     Route: 060
     Dates: start: 20120402, end: 20120514

REACTIONS (3)
  - MONONUCLEOSIS SYNDROME [None]
  - LIVER FUNCTION TEST ABNORMAL [None]
  - CONVULSION [None]
